FAERS Safety Report 5927139-3 (Version None)
Quarter: 2008Q4

REPORT INFORMATION
  Report Type: 
  Country: None (occurrence: None)
  Receive Date: 20081022
  Receipt Date: 20081010
  Transmission Date: 20090506
  Serious: Yes (Other)
  Sender: FDA-Public Use
  Company Number: US-PFIZER INC-2008077577

PATIENT
  Sex: Male
  Weight: 86 kg

DRUGS (2)
  1. GABAPENTIN [Suspect]
     Indication: NEUROPATHY PERIPHERAL
     Route: 048
     Dates: start: 20080501, end: 20080710
  2. SOMA [Suspect]
     Indication: MUSCLE SPASMS
     Route: 048
     Dates: start: 20080505

REACTIONS (2)
  - EJACULATION FAILURE [None]
  - SEMEN VOLUME DECREASED [None]
